FAERS Safety Report 5309515-5 (Version None)
Quarter: 2007Q2

REPORT INFORMATION
  Report Type: 
  Country: None (occurrence: None)
  Receive Date: 20070427
  Receipt Date: 20060605
  Transmission Date: 20071010
  Serious: No
  Sender: FDA-Public Use
  Company Number: US-GLAXOSMITHKLINE-A0607908A

PATIENT
  Age: 56 Year
  Sex: Female

DRUGS (3)
  1. AMERGE [Suspect]
     Indication: MIGRAINE
     Route: 048
  2. IMITREX [Suspect]
  3. NO CONCURRENT MEDICATION [Concomitant]

REACTIONS (3)
  - CHEST DISCOMFORT [None]
  - SENSATION OF PRESSURE [None]
  - THROAT TIGHTNESS [None]
